FAERS Safety Report 4972877-2 (Version None)
Quarter: 2006Q2

REPORT INFORMATION
  Report Type: 
  Country: None (occurrence: None)
  Receive Date: 20060410
  Receipt Date: 20060328
  Transmission Date: 20061013
  Serious: Yes (Hospitalization)
  Sender: FDA-Public Use
  Company Number: 2006PV009624

PATIENT
  Age: 85 Year
  Sex: Female

DRUGS (15)
  1. BYETTA [Suspect]
     Indication: DIABETES MELLITUS NON-INSULIN-DEPENDENT
     Dosage: 5  MCG; BID; SC
     Route: 058
     Dates: start: 20060219, end: 20060220
  2. ATENOLOL [Suspect]
     Dosage: 25 MG; QD
     Dates: end: 20060221
  3. AMARYL [Concomitant]
  4. ACTOS [Concomitant]
  5. BUMEX [Concomitant]
  6. CYMBALTA [Concomitant]
  7. COREG [Concomitant]
  8. LISINOPRIL [Concomitant]
  9. NORVASC [Concomitant]
  10. EDICRINE [Concomitant]
  11. CRESTOR [Concomitant]
  12. KLOR-CON [Concomitant]
  13. ASPIRIN [Concomitant]
  14. FOSAMAX [Concomitant]
  15. PREDNISONE [Concomitant]

REACTIONS (12)
  - ACUTE MYOCARDIAL INFARCTION [None]
  - AORTIC ARTERIOSCLEROSIS [None]
  - AORTIC VALVE DISEASE [None]
  - BRADYCARDIA [None]
  - CARDIAC FAILURE CONGESTIVE [None]
  - CONDITION AGGRAVATED [None]
  - CORONARY ARTERY STENOSIS [None]
  - HYPOGLYCAEMIA [None]
  - HYPOTENSION [None]
  - SINUS ARREST [None]
  - SUPRAVENTRICULAR EXTRASYSTOLES [None]
  - SYNCOPE [None]
